FAERS Safety Report 19322438 (Version 1)
Quarter: 2021Q2

REPORT INFORMATION
  Report Type: Spontaneous
  Country: IN (occurrence: IN)
  Receive Date: 20210528
  Receipt Date: 20210528
  Transmission Date: 20210717
  Serious: Yes (Other)
  Sender: FDA-Public Use
  Company Number: IN-UCBSA-2021024943

PATIENT

DRUGS (1)
  1. BRIVARACETAM [Suspect]
     Active Substance: BRIVARACETAM
     Indication: EPILEPSY
     Dosage: UNK

REACTIONS (4)
  - Drug ineffective [Unknown]
  - Mood swings [Unknown]
  - Seizure [Unknown]
  - Somnolence [Unknown]
